FAERS Safety Report 10217046 (Version 2)
Quarter: 2014Q2

REPORT INFORMATION
  Report Type: Other
  Country: CA (occurrence: CA)
  Receive Date: 20140604
  Receipt Date: 20140604
  Transmission Date: 20141212
  Serious: Yes (Hospitalization, Other)
  Sender: FDA-Public Use
  Company Number: CA-GSKPPD-2014GSK022854

PATIENT
  Age: 72 Year
  Sex: Male

DRUGS (3)
  1. AVANDIA [Suspect]
     Indication: DIABETES MELLITUS
     Dosage: DATES OF AVANDIA USE COULD NOT BE CONFIRMED IN RECORDS REVIEWED.
     Route: 048
  2. ALTACE [Concomitant]
  3. LASIX [Concomitant]
     Dosage: TREATMENT MEDICATION
     Route: 042

REACTIONS (6)
  - Heart rate irregular [None]
  - Palpitations [None]
  - Bundle branch block [None]
  - Myocardial ischaemia [None]
  - Cardiomegaly [None]
  - Cardiac failure congestive [None]
